FAERS Safety Report 13332083 (Version 2)
Quarter: 2017Q1

REPORT INFORMATION
  Report Type: Spontaneous
  Country: JP (occurrence: JP)
  Receive Date: 20170313
  Receipt Date: 20170316
  Transmission Date: 20170428
  Serious: Yes (Death, Other)
  Sender: FDA-Public Use
  Company Number: JP-BAYER-2017-039956

PATIENT
  Age: 23 Month
  Sex: Male

DRUGS (3)
  1. ACETYLSALICYLIC ACID({=100 MG) [Suspect]
     Active Substance: ASPIRIN
     Dosage: UNK
     Route: 048
  2. HEPARIN [Suspect]
     Active Substance: HEPARIN SODIUM
     Dosage: 50 UNITS/KG
  3. HEPARIN [Suspect]
     Active Substance: HEPARIN SODIUM
     Dosage: 100 UNITS/KG

REACTIONS (5)
  - Cerebral ventricular rupture [None]
  - Drug administration error [Fatal]
  - Drug interaction [None]
  - Labelled drug-drug interaction medication error [Fatal]
  - Subarachnoid haemorrhage [Fatal]
